FAERS Safety Report 18329479 (Version 1)
Quarter: 2020Q3

REPORT INFORMATION
  Report Type: Spontaneous
  Country: ES (occurrence: ES)
  Receive Date: 20200930
  Receipt Date: 20200930
  Transmission Date: 20201103
  Serious: Yes (Hospitalization)
  Sender: FDA-Public Use
  Company Number: ES-TEVA-2020-ES-1832172

PATIENT
  Age: 57 Year
  Sex: Female

DRUGS (2)
  1. METAMIZOL [Suspect]
     Active Substance: METAMIZOLE SODIUM
     Dosage: 1725 MILLIGRAM DAILY; 1?1?1
     Route: 048
     Dates: start: 20200510, end: 20200523
  2. PAROXETINE. [Suspect]
     Active Substance: PAROXETINE
     Indication: AGITATED DEPRESSION
     Dosage: 20 MILLIGRAM DAILY; 1?0?0
     Route: 048
     Dates: start: 20191010, end: 20200523

REACTIONS (3)
  - Gastric ulcer haemorrhage [Recovered/Resolved]
  - Anaemia [Recovered/Resolved]
  - Duodenal ulcer haemorrhage [Recovered/Resolved]

NARRATIVE: CASE EVENT DATE: 20200523
